FAERS Safety Report 6712480-7 (Version None)
Quarter: 2010Q2

REPORT INFORMATION
  Report Type: 
  Country: None (occurrence: None)
  Receive Date: 20100506
  Receipt Date: 20100428
  Transmission Date: 20101027
  Serious: No
  Sender: FDA-Public Use
  Company Number: US-BIOGENIDEC-2010BI014437

PATIENT
  Sex: Female

DRUGS (1)
  1. AVONEX [Suspect]
     Indication: MULTIPLE SCLEROSIS
     Route: 030
     Dates: start: 20020630

REACTIONS (5)
  - BALANCE DISORDER [None]
  - HYPOTHYROIDISM [None]
  - OSTEOPOROSIS [None]
  - PARAESTHESIA [None]
  - URINARY TRACT INFECTION [None]
